FAERS Safety Report 18885825 (Version 1)
Quarter: 2021Q1

REPORT INFORMATION
  Report Type: Spontaneous
  Country: US (occurrence: US)
  Receive Date: 20210209
  Receipt Date: 20210209
  Transmission Date: 20210420
  Serious: Yes (Other)
  Sender: FDA-Public Use
  Company Number: None

PATIENT
  Age: 42 Year
  Sex: Male

DRUGS (1)
  1. SWANSON ULTRA? CBD + SLEEP SUPPORT FULL SPECTRUM [Suspect]
     Active Substance: CANNABIDIOL\CANNABIS SATIVA FLOWERING TOP\MELATONIN
     Indication: NUTRITIONAL SUPPLEMENTATION
     Route: 048
     Dates: start: 20210126, end: 20210127

REACTIONS (3)
  - Haematochezia [None]
  - Hypoaesthesia [None]
  - Abdominal pain upper [None]

NARRATIVE: CASE EVENT DATE: 20210126
